FAERS Safety Report 25348700 (Version 1)
Quarter: 2025Q2

REPORT INFORMATION
  Report Type: Report from Study
  Country: US (occurrence: US)
  Receive Date: 20250522
  Receipt Date: 20250522
  Transmission Date: 20250717
  Serious: Yes (Other)
  Sender: UCB
  Company Number: US-UCBSA-2025029984

PATIENT
  Sex: Female

DRUGS (1)
  1. CERTOLIZUMAB PEGOL [Suspect]
     Active Substance: CERTOLIZUMAB PEGOL
     Indication: Product used for unknown indication
     Dates: start: 2022

REACTIONS (3)
  - Pulmonary fibrosis [Recovered/Resolved]
  - Interstitial lung disease [Recovered/Resolved]
  - Pulmonary mass [Recovered/Resolved]

NARRATIVE: CASE EVENT DATE: 20220101
